FAERS Safety Report 17043302 (Version 1)
Quarter: 2019Q4

REPORT INFORMATION
  Report Type: Report from Study
  Country: None (occurrence: DE)
  Receive Date: 20191118
  Receipt Date: 20191118
  Transmission Date: 20200122
  Serious: Yes (Hospitalization)
  Sender: FDA-Public Use
  Company Number: DE-ABBVIE-19K-062-3000017-00

PATIENT
  Age: 47 Year
  Sex: Male
  Weight: 68 kg

DRUGS (7)
  1. NOVAMINSULFON [Concomitant]
     Active Substance: METAMIZOLE
     Indication: PRODUCT USED FOR UNKNOWN INDICATION
  2. CARVEDILOL. [Concomitant]
     Active Substance: CARVEDILOL
     Dates: start: 20190917
  3. MAVIRET [Suspect]
     Active Substance: GLECAPREVIR\PIBRENTASVIR
     Indication: CHRONIC HEPATITIS C
     Route: 048
     Dates: start: 20190301, end: 20190526
  4. PANTOPRAZOL [Concomitant]
     Active Substance: PANTOPRAZOLE SODIUM
     Indication: PRODUCT USED FOR UNKNOWN INDICATION
     Dates: start: 201808
  5. INSULIN [Concomitant]
     Active Substance: INSULIN NOS
     Indication: PRODUCT USED FOR UNKNOWN INDICATION
  6. CARVEDILOL. [Concomitant]
     Active Substance: CARVEDILOL
     Indication: CARDIOVASCULAR DISORDER
     Dates: start: 201808
  7. CARVEDILOL. [Concomitant]
     Active Substance: CARVEDILOL
     Dates: start: 20190613, end: 20190916

REACTIONS (1)
  - Dissociative disorder [Recovered/Resolved]

NARRATIVE: CASE EVENT DATE: 20190917
